FAERS Safety Report 8425690-8 (Version None)
Quarter: 2012Q2

REPORT INFORMATION
  Report Type: 
  Country: None (occurrence: None)
  Receive Date: 20120611
  Receipt Date: 20120606
  Transmission Date: 20120825
  Serious: Yes (Other)
  Sender: FDA-Public Use
  Company Number: PHHY2012AU019292

PATIENT
  Sex: Female

DRUGS (5)
  1. MOVIPREP [Concomitant]
     Indication: GASTROINTESTINAL MOTILITY DISORDER
  2. MIRTAZAPINE [Concomitant]
     Indication: DEPRESSION
  3. PRAMIPEXOLE DIHYDROCHLORIDE [Concomitant]
     Indication: PARKINSON'S DISEASE
  4. STALEVO 100 [Suspect]
     Indication: PARKINSON'S DISEASE
     Dosage: 200 /150/37.5 MG TABLET, 6 TIMES DAILY
     Route: 048
  5. MOTILIUM [Concomitant]
     Indication: PARKINSON'S DISEASE

REACTIONS (2)
  - PARKINSON'S DISEASE [None]
  - MEDICATION RESIDUE [None]
